FAERS Safety Report 5771676-1 (Version None)
Quarter: 2008Q2

REPORT INFORMATION
  Report Type: 
  Country: None (occurrence: None)
  Receive Date: 20080613
  Receipt Date: 20080604
  Transmission Date: 20081010
  Serious: Yes (Life-Threatening)
  Sender: FDA-Public Use
  Company Number: JP-BRISTOL-MYERS SQUIBB COMPANY-14153050

PATIENT
  Age: 43 Year
  Sex: Male
  Weight: 63 kg

DRUGS (4)
  1. STOCRIN CAPS [Suspect]
     Indication: HIV INFECTION
     Route: 048
     Dates: start: 20011219
  2. EPIVIR [Suspect]
     Indication: HIV INFECTION
     Route: 048
     Dates: start: 20011219
  3. ZERIT [Concomitant]
     Indication: HIV INFECTION
     Dates: start: 20011219
  4. RETROVIR [Concomitant]
     Indication: HIV INFECTION
     Dosage: CAPS, TOTAL DAILY DOSE : 600 MG
     Route: 048
     Dates: start: 20011219

REACTIONS (1)
  - HYPERTRIGLYCERIDAEMIA [None]
